FAERS Safety Report 5885355-3 (Version None)
Quarter: 2008Q3

REPORT INFORMATION
  Report Type: 
  Country: None (occurrence: None)
  Receive Date: 20080916
  Receipt Date: 20080909
  Transmission Date: 20090109
  Serious: Yes (Hospitalization)
  Sender: FDA-Public Use
  Company Number: BR-ASTRAZENECA-2008UW18677

PATIENT
  Sex: Male

DRUGS (4)
  1. HEAVY BUPIVACAINE [Suspect]
     Dosage: 0.5% - 2.5 MG
     Route: 064
  2. HEAVY BUPIVACAINE [Suspect]
     Dosage: 0.5% - 2.5 MG
     Route: 008
  3. FENTANYL [Suspect]
     Dosage: 20 UG
     Route: 037
  4. FENTANYL [Suspect]
     Dosage: 20 UG
     Route: 008

REACTIONS (2)
  - APGAR SCORE LOW [None]
  - PREMATURE BABY [None]
